FAERS Safety Report 9409263 (Version 2)
Quarter: 2013Q2

REPORT INFORMATION
  Report Type: Spontaneous
  Country: FR (occurrence: None)
  Receive Date: 20130410
  Receipt Date: 20130416
  Transmission Date: 20140414
  Serious: No
  Sender: FDA-Public Use
  Company Number: 2013035088

PATIENT
  Age: 28 Year
  Sex: Female

DRUGS (4)
  1. PRIVIGEN [Suspect]
     Indication: MUSCULAR WEAKNESS
     Route: 042
     Dates: start: 20130110
  2. MESTINON (PYRIDOSTIGMINE BROMIDE) [Concomitant]
  3. IMUREL (AZATHIOPRINE) [Concomitant]
  4. LAMICTAL (LAMOTRIGINE) [Concomitant]

REACTIONS (2)
  - Injection site swelling [None]
  - Extravasation [None]
